FAERS Safety Report 5454708-X (Version None)
Quarter: 2007Q3

REPORT INFORMATION
  Report Type: 
  Country: None (occurrence: None)
  Receive Date: 20070917
  Receipt Date: 20070430
  Transmission Date: 20080115
  Serious: Yes (Hospitalization, Disabling, Other)
  Sender: FDA-Public Use
  Company Number: US-ASTRAZENECA-2006UW18922

PATIENT
  Sex: Female
  Weight: 96.4 kg

DRUGS (5)
  1. SEROQUEL [Suspect]
     Indication: SCHIZOPHRENIA
     Route: 048
     Dates: start: 20031229, end: 20061101
  2. SEROQUEL [Suspect]
     Indication: BIPOLAR DISORDER
     Route: 048
     Dates: start: 20031229, end: 20061101
  3. SEROQUEL [Suspect]
     Indication: DEPRESSION
     Route: 048
     Dates: start: 20031229, end: 20061101
  4. ATIVAN [Concomitant]
     Dates: start: 19900101, end: 20000101
  5. TOFRANIL [Concomitant]
     Dates: start: 19900101, end: 20000101

REACTIONS (1)
  - PANCREATITIS CHRONIC [None]
